FAERS Safety Report 7522452-0 (Version None)
Quarter: 2011Q2

REPORT INFORMATION
  Report Type: 
  Country: None (occurrence: None)
  Receive Date: 20110603
  Receipt Date: 20110527
  Transmission Date: 20111010
  Serious: Yes (Other)
  Sender: FDA-Public Use
  Company Number: NL-ABBOTT-11P-114-0697121-00

PATIENT
  Sex: Male
  Weight: 87 kg

DRUGS (5)
  1. OMEPRAZOLE [Concomitant]
     Indication: PROPHYLAXIS AGAINST GASTROINTESTINAL ULCER
     Route: 048
     Dates: start: 20080101
  2. METHOTREXATE 10 INJECTION FLUID 10 MG/ML DISPOSABLE 1 ML SYRINGE [Concomitant]
     Indication: CROHN'S DISEASE
     Route: 058
     Dates: start: 20080101
  3. HUMIRA [Suspect]
     Indication: CROHN'S DISEASE
     Route: 058
     Dates: start: 20101208
  4. CELECOXIB [Concomitant]
     Indication: PAIN
     Dosage: 1 DOSE TWICE A DAY AS NEEDED
     Route: 048
     Dates: start: 20101026
  5. FOLIC ACID [Concomitant]
     Indication: VITAMIN SUPPLEMENTATION
     Route: 048
     Dates: start: 20080101

REACTIONS (3)
  - DIZZINESS [None]
  - DIARRHOEA [None]
  - INTESTINAL FISTULA [None]
